FAERS Safety Report 17419326 (Version 1)
Quarter: 2020Q1

REPORT INFORMATION
  Report Type: Spontaneous
  Country: US (occurrence: US)
  Receive Date: 20200214
  Receipt Date: 20200214
  Transmission Date: 20200409
  Serious: Yes (Other)
  Sender: FDA-Public Use
  Company Number: US-BAYER-2020-022438

PATIENT
  Age: 50 Year
  Sex: Female

DRUGS (1)
  1. MIRENA [Suspect]
     Active Substance: LEVONORGESTREL
     Indication: MENORRHAGIA
     Dosage: 20 ?G PER DAY, CONTINUOSLY
     Route: 015

REACTIONS (5)
  - Medical device discomfort [Recovering/Resolving]
  - Alopecia [Recovering/Resolving]
  - Abdominal distension [Recovering/Resolving]
  - Therapeutic response unexpected [None]
  - Genital haemorrhage [None]
